FAERS Safety Report 5011916-X (Version None)
Quarter: 2006Q2

REPORT INFORMATION
  Report Type: 
  Country: None (occurrence: None)
  Receive Date: 20060524
  Receipt Date: 20060524
  Transmission Date: 20061013
  Serious: Yes (Hospitalization)
  Sender: FDA-Public Use
  Company Number: None

PATIENT
  Sex: Male
  Weight: 82 kg

DRUGS (2)
  1. PROCHLORPERAZINE [Suspect]
     Indication: NAUSEA
     Dosage: 10 MG Q6H PRN PO
     Route: 048
     Dates: start: 20051001, end: 20060101
  2. PROCHLORPERAZINE [Suspect]
     Indication: VOMITING
     Dosage: 10 MG Q6H PRN PO
     Route: 048
     Dates: start: 20051001, end: 20060101

REACTIONS (2)
  - DYSPNOEA [None]
  - URINARY HESITATION [None]
